FAERS Safety Report 10860807 (Version 2)
Quarter: 2015Q1

REPORT INFORMATION
  Report Type: Spontaneous
  Country: US (occurrence: US)
  Receive Date: 20150224
  Receipt Date: 20150327
  Transmission Date: 20150721
  Serious: No
  Sender: FDA-Public Use
  Company Number: US-GLAXOSMITHKLINE-US2015GSK005895

PATIENT
  Age: 44 Year
  Sex: Female

DRUGS (3)
  1. TANZEUM [Suspect]
     Active Substance: ALBIGLUTIDE
     Indication: BLOOD GLUCOSE ABNORMAL
     Dosage: 30 MG, WE
     Route: 042
     Dates: start: 20141209
  2. TANZEUM [Suspect]
     Active Substance: ALBIGLUTIDE
     Indication: WEIGHT
     Dosage: 50 MG, WE
     Route: 042
     Dates: start: 20150107
  3. TANZEUM [Suspect]
     Active Substance: ALBIGLUTIDE
     Indication: TYPE 1 DIABETES MELLITUS

REACTIONS (2)
  - Weight decreased [Unknown]
  - Therapeutic response unexpected [Unknown]

NARRATIVE: CASE EVENT DATE: 201412
